FAERS Safety Report 4337423-5 (Version None)
Quarter: 2004Q2

REPORT INFORMATION
  Report Type: 
  Country: None (occurrence: None)
  Receive Date: 20040407
  Receipt Date: 20040330
  Transmission Date: 20050107
  Serious: Yes (Other)
  Sender: FDA-Public Use
  Company Number: 2004020621

PATIENT
  Sex: Female

DRUGS (3)
  1. RELPAX [Suspect]
     Indication: ILL-DEFINED DISORDER
  2. SUMATRIPTAN SUCCINATE [Concomitant]
  3. ZOLMITRIPTAN (ZOLMITRIPTAN) [Concomitant]

REACTIONS (1)
  - ELECTROCARDIOGRAM ST SEGMENT DEPRESSION [None]
